FAERS Safety Report 19184714 (Version 1)
Quarter: 2021Q2

REPORT INFORMATION
  Report Type: Spontaneous
  Country: IR (occurrence: IR)
  Receive Date: 20210427
  Receipt Date: 20210427
  Transmission Date: 20210717
  Serious: Yes (Other)
  Sender: FDA-Public Use
  Company Number: IR-SUN PHARMACEUTICAL INDUSTRIES LTD-2021RR-293350

PATIENT
  Age: 77 Year
  Sex: Male

DRUGS (4)
  1. CISPLATIN. [Suspect]
     Active Substance: CISPLATIN
     Indication: ADENOCARCINOMA GASTRIC
     Dosage: 75 MILLIGRAM/SQ. METER, 5 CYCLES
     Route: 065
  2. FLUOROURACIL. [Suspect]
     Active Substance: FLUOROURACIL
     Indication: ADENOCARCINOMA GASTRIC
     Dosage: 750 MILLIGRAM/SQ. METER, 5 CYCLES
     Route: 065
  3. FLUCONAZOLE. [Suspect]
     Active Substance: FLUCONAZOLE
     Indication: ADENOCARCINOMA GASTRIC
     Dosage: 400 MILLIGRAM, DAILY
     Route: 065
  4. NYSTATIN. [Suspect]
     Active Substance: NYSTATIN
     Indication: MUCOSAL INFLAMMATION
     Dosage: 3 MILLIGRAM/KILOGRAM, UNK
     Route: 048

REACTIONS (4)
  - Oral candidiasis [Unknown]
  - Drug resistance [Unknown]
  - Drug ineffective [Unknown]
  - Treatment failure [Unknown]
